FAERS Safety Report 6745885-9 (Version None)
Quarter: 2010Q2

REPORT INFORMATION
  Report Type: 
  Country: None (occurrence: None)
  Receive Date: 20100525
  Receipt Date: 20100525
  Transmission Date: 20101027
  Serious: Yes (Other)
  Sender: FDA-Public Use
  Company Number: None

PATIENT
  Age: 7 Year
  Sex: Female
  Weight: 26.3086 kg

DRUGS (2)
  1. CHILDREN'S MOTRIN [Suspect]
     Indication: SINUSITIS
     Dosage: 2 TEASPOONS EVERY 4 HOURS PO
     Route: 048
     Dates: start: 20100505, end: 20100518
  2. CHILDREN'S MOTRIN [Suspect]
     Indication: PYREXIA
     Dosage: 2 TEASPOONS EVERY 4 HOURS PO
     Route: 048

REACTIONS (3)
  - CONDITION AGGRAVATED [None]
  - IRRITABLE BOWEL SYNDROME [None]
  - PRODUCT QUALITY ISSUE [None]
